FAERS Safety Report 17607551 (Version 2)
Quarter: 2021Q3

REPORT INFORMATION
  Report Type: Spontaneous
  Country: ES (occurrence: ES)
  Receive Date: 20200401
  Receipt Date: 20210719
  Transmission Date: 20211014
  Serious: Yes (Life-Threatening, Hospitalization, Other)
  Sender: FDA-Public Use
  Company Number: ES-AUROBINDO-AUR-APL-2020-015898

PATIENT
  Age: 86 Year
  Sex: Male

DRUGS (1)
  1. VALACICLOVIR [Suspect]
     Active Substance: VALACYCLOVIR HYDROCHLORIDE
     Indication: HERPES VIRUS INFECTION
     Dosage: 1 GRAM, 3 TIMES A DAY
     Route: 065

REACTIONS (4)
  - Posterior cortical atrophy [Recovered/Resolved]
  - Central nervous system lesion [Recovered/Resolved]
  - Neurotoxicity [Recovered/Resolved]
  - Encephalopathy [Recovered/Resolved]
